FAERS Safety Report 9224265 (Version 2)
Quarter: 2014Q1

REPORT INFORMATION
  Report Type: Spontaneous
  Country: US (occurrence: None)
  Receive Date: 20120910
  Receipt Date: 20130606
  Transmission Date: 20141002
  Serious: No
  Sender: FDA-Public Use
  Company Number: 1208USA004657

PATIENT
  Sex: Male

DRUGS (1)
  1. ZIOPTAN [Suspect]
     Indication: GLAUCOMA
     Route: 047
     Dates: start: 201209

REACTIONS (4)
  - Cough [None]
  - Underdose [None]
  - Muscular weakness [None]
  - Muscle spasms [None]
